FAERS Safety Report 9907579 (Version 1)
Quarter: 2014Q1

REPORT INFORMATION
  Report Type: Spontaneous
  Country: ES (occurrence: ES)
  Receive Date: 20140218
  Receipt Date: 20140218
  Transmission Date: 20141002
  Serious: Yes (Other)
  Sender: FDA-Public Use
  Company Number: ES-PFIZER INC-2014042277

PATIENT
  Age: 77 Year
  Sex: Female

DRUGS (1)
  1. TOVIAZ [Suspect]
     Indication: URINARY INCONTINENCE
     Dosage: 4 MG, DAILY
     Route: 048
     Dates: start: 20130313, end: 20130313

REACTIONS (1)
  - Delirium [Recovered/Resolved]
